FAERS Safety Report 6403915-8 (Version None)
Quarter: 2009Q4

REPORT INFORMATION
  Report Type: 
  Country: None (occurrence: None)
  Receive Date: 20091016
  Receipt Date: 20090723
  Transmission Date: 20100525
  Serious: Yes (Other)
  Sender: FDA-Public Use
  Company Number: US-ALEXION-A200900601

PATIENT
  Sex: Male
  Weight: 69.841 kg

DRUGS (17)
  1. SOLIRIS [Suspect]
     Indication: ANTIPHOSPHOLIPID SYNDROME
     Dosage: 1200 MG, SINGLE
     Route: 042
     Dates: start: 20090713, end: 20090713
  2. SOLIRIS [Suspect]
     Dosage: 900 MG
     Route: 042
     Dates: start: 20090714, end: 20090714
  3. SOLIRIS [Suspect]
     Dosage: 900 MG
     Route: 042
     Dates: start: 20090719, end: 20090719
  4. HEPARIN [Suspect]
     Indication: ANTIPHOSPHOLIPID SYNDROME
     Dosage: MOSTLY CONTINUOUSLY
     Dates: start: 20090712
  5. DACLIZUMAB [Concomitant]
     Dosage: 140 MG, SINGLE
     Route: 042
     Dates: start: 20090713, end: 20090713
  6. DACLIZUMAB [Concomitant]
     Dosage: 70 MG, SINGLE
     Route: 042
     Dates: start: 20090719, end: 20090719
  7. DEXAMETHASONE 0.5MG TAB [Concomitant]
     Dosage: 100 MG, TAPER
     Route: 042
     Dates: start: 20090713, end: 20090713
  8. PREDNISONE [Concomitant]
     Dosage: 30 MG, QD
     Route: 048
     Dates: start: 20090701
  9. RAPAMUNE [Concomitant]
     Dosage: DOSING ADJUSTED TO SERUM LEVELS
     Dates: start: 20090713
  10. MYCOPHENOLATE MOFETIL [Concomitant]
     Dosage: 1000 MG, BID
     Route: 048
     Dates: start: 20090713
  11. GANCICLOVIR [Concomitant]
     Dosage: 44 MG, UNK
     Route: 042
     Dates: start: 20090713, end: 20090713
  12. GANCICLOVIR [Concomitant]
     Dosage: 100 MG, QD
     Route: 042
     Dates: start: 20090714, end: 20090716
  13. VALGANCICLOVIR HCL [Concomitant]
     Dosage: 450 MG, QD
     Route: 048
     Dates: start: 20090717
  14. CIPROFLOXACIN HYDROCHLORIDE [Concomitant]
     Dosage: 500 MG, BID ADJUSTED PER RENAL FUNCTION
     Route: 048
  15. NIFEDIPINE [Concomitant]
     Indication: HYPERTENSION
     Dosage: UNK 30-60 MG ADJUSTED AS NEEDED, BID
     Route: 048
  16. FENTANYL [Concomitant]
     Indication: PAIN
     Dosage: 20 UG, Q10 MINUTES, PRN
     Route: 042
  17. TOPIRAMATE [Concomitant]
     Dosage: 50 MG, BID
     Route: 048

REACTIONS (1)
  - RETROPERITONEAL HAEMATOMA [None]
